FAERS Safety Report 14513902 (Version 1)
Quarter: 2018Q1

REPORT INFORMATION
  Report Type: Spontaneous
  Country: US (occurrence: US)
  Receive Date: 20180209
  Receipt Date: 20180209
  Transmission Date: 20180509
  Serious: Yes (Hospitalization)
  Sender: FDA-Public Use
  Company Number: US-PROCTER_AND_GAMBLE-GS18016000

PATIENT
  Age: 75 Year
  Sex: Female

DRUGS (1)
  1. PEPTO-BISMOL NOS [Suspect]
     Active Substance: BISMUTH SUBSALICYLATE OR CALCIUM CARBONATE
     Route: 048

REACTIONS (2)
  - Adverse drug reaction [Recovered/Resolved]
  - Blood pressure immeasurable [Recovered/Resolved]
